FAERS Safety Report 11668419 (Version 1)
Quarter: 2015Q4

REPORT INFORMATION
  Report Type: Spontaneous
  Country: US (occurrence: US)
  Receive Date: 20151027
  Receipt Date: 20151027
  Transmission Date: 20160304
  Serious: No
  Sender: FDA-Public Use
  Company Number: US-ASTRAZENECA-2015SF00138

PATIENT
  Age: 20870 Day
  Sex: Male
  Weight: 70.8 kg

DRUGS (4)
  1. BACLOFEN. [Concomitant]
     Active Substance: BACLOFEN
     Indication: MUSCLE RIGIDITY
     Route: 048
     Dates: start: 2005
  2. HYDROCODONE [Concomitant]
     Active Substance: HYDROCODONE
     Indication: PAIN
     Dosage: 10-325 MG AS REQUIRED
     Route: 048
     Dates: start: 2005
  3. MOVANTIK [Suspect]
     Active Substance: NALOXEGOL OXALATE
     Indication: PAIN
     Dosage: TOOK ANOTHER DOSE IN THE MORNING OF 12-OCT-2015 AND A DOSE IN THE AFTERNOON OF 12-OCT-2015
     Route: 048
     Dates: start: 20151012
  4. MOVANTIK [Suspect]
     Active Substance: NALOXEGOL OXALATE
     Indication: PAIN
     Dosage: TOOK ONE DOSE OF MOVANTIK 25 MG
     Route: 048
     Dates: start: 20151012

REACTIONS (3)
  - Bowel movement irregularity [Unknown]
  - Off label use [Unknown]
  - Product use issue [Unknown]

NARRATIVE: CASE EVENT DATE: 20151011
